FAERS Safety Report 8107993-X (Version None)
Quarter: 2012Q1

REPORT INFORMATION
  Report Type: 
  Country: None (occurrence: None)
  Receive Date: 20120202
  Receipt Date: 20120125
  Transmission Date: 20120608
  Serious: Yes (Hospitalization, Other)
  Sender: FDA-Public Use
  Company Number: US-ACTELION-A-US2011-49510

PATIENT

DRUGS (3)
  1. REVATIO [Concomitant]
  2. CALCIUM CHANNEL BLOCKERS [Concomitant]
  3. TRACLEER [Suspect]
     Indication: PULMONARY ARTERIAL HYPERTENSION
     Dosage: UNK
     Route: 048
     Dates: start: 20090218

REACTIONS (21)
  - PYREXIA [None]
  - CEREBROVASCULAR ACCIDENT [None]
  - NAUSEA [None]
  - OEDEMA [None]
  - WEIGHT INCREASED [None]
  - HAEMOGLOBIN DECREASED [None]
  - DYSGEUSIA [None]
  - CHEST PAIN [None]
  - BLOOD IRON DECREASED [None]
  - DYSPEPSIA [None]
  - DECREASED APPETITE [None]
  - ASTHENIA [None]
  - BLOOD ALKALINE PHOSPHATASE INCREASED [None]
  - DYSPNOEA [None]
  - ABDOMINAL PAIN [None]
  - FATIGUE [None]
  - DIZZINESS [None]
  - SYNCOPE [None]
  - VOMITING [None]
  - LIVER FUNCTION TEST ABNORMAL [None]
  - ANAEMIA [None]
